FAERS Safety Report 9112986 (Version 1)
Quarter: 2013Q1

REPORT INFORMATION
  Report Type: Spontaneous
  Country: CA (occurrence: CA)
  Receive Date: 20130211
  Receipt Date: 20130211
  Transmission Date: 20140127
  Serious: Yes (Hospitalization)
  Sender: FDA-Public Use
  Company Number: CA-ASTRAZENECA-2013SE07340

PATIENT
  Age: 64 Year
  Sex: Female

DRUGS (2)
  1. SYMBICORT TURBOHALER [Suspect]
     Indication: CHRONIC OBSTRUCTIVE PULMONARY DISEASE
     Dosage: 800 MCG, 200/6 MCG, 2 DOSES BID
     Route: 055
  2. SYMBICORT TURBOHALER [Suspect]
     Indication: CHRONIC OBSTRUCTIVE PULMONARY DISEASE
     Dosage: 80/4.5 MCG, UNKNOWN
     Route: 055

REACTIONS (1)
  - Chronic obstructive pulmonary disease [Recovering/Resolving]
